FAERS Safety Report 6277532-7 (Version None)
Quarter: 2009Q3

REPORT INFORMATION
  Report Type: 
  Country: None (occurrence: None)
  Receive Date: 20090722
  Receipt Date: 20090706
  Transmission Date: 20100115
  Serious: Yes (Death)
  Sender: FDA-Public Use
  Company Number: US-PFIZER INC-2009242653

PATIENT
  Sex: Male
  Weight: 60 kg

DRUGS (9)
  1. VISTARIL [Suspect]
     Indication: ANXIOLYTIC THERAPY
     Dosage: UNK
  2. XANAX [Suspect]
  3. ZOLOFT [Suspect]
     Indication: DEPRESSION
  4. DEMEROL [Suspect]
  5. DILAUDID [Suspect]
  6. VICODIN [Suspect]
  7. PAXIL [Suspect]
     Indication: DEPRESSION
  8. SOMA [Suspect]
     Indication: MUSCLE RELAXANT THERAPY
  9. PRILOSEC [Suspect]
     Indication: GASTRIC PH DECREASED

REACTIONS (1)
  - DEATH [None]
